FAERS Safety Report 4508485-7 (Version None)
Quarter: 2004Q4

REPORT INFORMATION
  Report Type: 
  Country: None (occurrence: None)
  Receive Date: 20041123
  Receipt Date: 20040301
  Transmission Date: 20050328
  Serious: No
  Sender: FDA-Public Use
  Company Number: 2004-00809

PATIENT
  Age: 44 Year
  Sex: Female
  Weight: 54.5 kg

DRUGS (2)
  1. BUPROPION HYDROCHLORIDE [Suspect]
     Indication: DEPRESSION
     Dosage: 100MG PER DAY
     Route: 048
     Dates: start: 20040206, end: 20040220
  2. TOPAMAX [Concomitant]
     Route: 065
     Dates: start: 20020101

REACTIONS (1)
  - URTICARIA [None]
